FAERS Safety Report 6620016-4 (Version None)
Quarter: 2010Q1

REPORT INFORMATION
  Report Type: 
  Country: None (occurrence: None)
  Receive Date: 20100309
  Receipt Date: 20100301
  Transmission Date: 20100710
  Serious: Yes (Disabling)
  Sender: FDA-Public Use
  Company Number: FR-ASTRAZENECA-2010SE09018

PATIENT
  Age: 16490 Day
  Sex: Male

DRUGS (4)
  1. MOPRAL [Suspect]
     Indication: PROPHYLAXIS AGAINST GASTROINTESTINAL ULCER
     Route: 048
  2. VELCADE [Suspect]
     Indication: MULTIPLE MYELOMA
     Dosage: 1.3 MG/M2
     Route: 042
     Dates: start: 20071106
  3. DEXAMETHASONE AP-HP [Suspect]
     Indication: MULTIPLE MYELOMA
     Route: 048
     Dates: start: 20090511
  4. EXOMUC [Suspect]
     Indication: BRONCHIAL DISORDER
     Route: 048
     Dates: start: 20090731, end: 20090803

REACTIONS (4)
  - DEAFNESS UNILATERAL [None]
  - EAR INFECTION [None]
  - EAR PAIN [None]
  - TINNITUS [None]
